FAERS Safety Report 7832155-0 (Version None)
Quarter: 2011Q4

REPORT INFORMATION
  Report Type: 
  Country: None (occurrence: None)
  Receive Date: 20111022
  Receipt Date: 20100507
  Transmission Date: 20120403
  Serious: No
  Sender: FDA-Public Use
  Company Number: US-BAYER-201022078NA

PATIENT
  Sex: Male

DRUGS (1)
  1. CIPROFLOXACIN [Suspect]
     Indication: PRODUCT USED FOR UNKNOWN INDICATION
     Dosage: 750 MG, QD
     Dates: start: 20091001, end: 20100506

REACTIONS (4)
  - DIARRHOEA [None]
  - NAUSEA [None]
  - ABDOMINAL PAIN UPPER [None]
  - RASH PAPULAR [None]
